FAERS Safety Report 8101993-1 (Version None)
Quarter: 2012Q1

REPORT INFORMATION
  Report Type: 
  Country: None (occurrence: None)
  Receive Date: 20120131
  Receipt Date: 20120120
  Transmission Date: 20120608
  Serious: Yes (Other)
  Sender: FDA-Public Use
  Company Number: GB-BAYER-200810251BNE

PATIENT
  Age: 67 Year
  Sex: Female

DRUGS (6)
  1. ASPIRIN [Suspect]
     Indication: MYOCARDIAL INFARCTION
  2. PLAVIX [Suspect]
     Indication: MYOCARDIAL INFARCTION
     Route: 065
  3. PREGABALIN [Suspect]
     Indication: TRIGEMINAL NEURALGIA
     Route: 065
  4. SIMVASTATIN [Suspect]
     Indication: MYOCARDIAL INFARCTION
     Route: 065
  5. RAMIPRIL [Suspect]
     Indication: MYOCARDIAL INFARCTION
     Route: 065
  6. BISOPROLOL FUMARATE [Suspect]
     Indication: MYOCARDIAL INFARCTION
     Route: 065

REACTIONS (1)
  - TRIGEMINAL NEURALGIA [None]
